FAERS Safety Report 5130942-3 (Version None)
Quarter: 2006Q4

REPORT INFORMATION
  Report Type: 
  Country: None (occurrence: None)
  Receive Date: 20061019
  Receipt Date: 20060927
  Transmission Date: 20070319
  Serious: Yes (Congenital Anomaly)
  Sender: FDA-Public Use
  Company Number: FR-ABBOTT-06P-056-0345975-00

PATIENT
  Sex: Female
  Weight: 3.52 kg

DRUGS (1)
  1. MONOZECLAR [Suspect]
     Indication: DRUG EXPOSURE DURING PREGNANCY

REACTIONS (2)
  - CYST [None]
  - HAEMANGIOMA [None]
